FAERS Safety Report 4458950-6 (Version None)
Quarter: 2004Q3

REPORT INFORMATION
  Report Type: 
  Country: None (occurrence: None)
  Receive Date: 20040923
  Receipt Date: 20040923
  Transmission Date: 20050211
  Serious: Yes (Life-Threatening, Hospitalization)
  Sender: FDA-Public Use
  Company Number: None

PATIENT
  Age: 43 Year
  Sex: Male
  Weight: 119.296 kg

DRUGS (1)
  1. PEGASYS [Suspect]
     Indication: HEPATITIS C
     Dosage: 180 MCG SQ Q WEEKLY
     Route: 058
     Dates: start: 20040220

REACTIONS (5)
  - ANAEMIA [None]
  - CHEST PAIN [None]
  - FATIGUE [None]
  - HEADACHE [None]
  - THROMBOTIC THROMBOCYTOPENIC PURPURA [None]
